FAERS Safety Report 5748445-1 (Version None)
Quarter: 2008Q2

REPORT INFORMATION
  Report Type: 
  Country: None (occurrence: None)
  Receive Date: 20080523
  Receipt Date: 20080512
  Transmission Date: 20081010
  Serious: Yes (Other)
  Sender: FDA-Public Use
  Company Number: US-PFIZER INC-2008041193

PATIENT
  Sex: Female
  Weight: 86.2 kg

DRUGS (3)
  1. CHANTIX [Suspect]
     Indication: SMOKING CESSATION THERAPY
     Route: 048
  2. PREDNISOLONE [Concomitant]
  3. LIPITOR [Concomitant]

REACTIONS (5)
  - ABNORMAL DREAMS [None]
  - DRUG DOSE OMISSION [None]
  - FLUID RETENTION [None]
  - INSOMNIA [None]
  - WEIGHT INCREASED [None]
